FAERS Safety Report 6805630-5 (Version None)
Quarter: 2010Q2

REPORT INFORMATION
  Report Type: 
  Country: None (occurrence: None)
  Receive Date: 20100628
  Receipt Date: 20080124
  Transmission Date: 20101027
  Serious: Yes (Hospitalization, Other)
  Sender: FDA-Public Use
  Company Number: US-PFIZER INC-2008007672

PATIENT
  Age: 29 Year
  Sex: Male

DRUGS (1)
  1. GEODON [Suspect]

REACTIONS (2)
  - HYPERGLYCAEMIA [None]
  - TYPE 1 DIABETES MELLITUS [None]
